FAERS Safety Report 4818803-8 (Version None)
Quarter: 2005Q4

REPORT INFORMATION
  Report Type: 
  Country: None (occurrence: None)
  Receive Date: 20051101
  Receipt Date: 20051019
  Transmission Date: 20060501
  Serious: Yes (Hospitalization)
  Sender: FDA-Public Use
  Company Number: 2005147612

PATIENT
  Age: 18 Year
  Sex: Female
  Weight: 132 kg

DRUGS (1)
  1. DOXYCYCLINE [Suspect]
     Indication: ILL-DEFINED DISORDER
     Dosage: UNKNOWN
     Route: 065

REACTIONS (3)
  - CERUMEN IMPACTION [None]
  - EAR DISORDER [None]
  - SINUSITIS [None]
